FAERS Safety Report 12513648 (Version 1)
Quarter: 2016Q2

REPORT INFORMATION
  Report Type: Spontaneous
  Country: US (occurrence: None)
  Receive Date: 20160629
  Receipt Date: 20160629
  Transmission Date: 20160815
  Serious: No
  Sender: FDA-Public Use
  Company Number: None

PATIENT
  Age: 17 Year
  Sex: Male

DRUGS (9)
  1. LISDEXAMFETAMINE [Suspect]
     Active Substance: LISDEXAMFETAMINE
     Route: 048
  2. CICLESONIDE [Concomitant]
     Active Substance: CICLESONIDE
  3. IBUPROFEN. [Concomitant]
     Active Substance: IBUPROFEN
  4. MILK OF MAG [Concomitant]
  5. ALBUTEROL. [Concomitant]
     Active Substance: ALBUTEROL
  6. LISDEXAMFETAMINE [Concomitant]
     Active Substance: LISDEXAMFETAMINE
  7. LACTASE [Concomitant]
     Active Substance: LACTASE
  8. MAG/ALUM/SIMETH [Concomitant]
  9. ACETAMINOPHEN. [Concomitant]
     Active Substance: ACETAMINOPHEN

REACTIONS (2)
  - Headache [None]
  - Decreased appetite [None]

NARRATIVE: CASE EVENT DATE: 20150426
